FAERS Safety Report 20331730 (Version 1)
Quarter: 2022Q1

REPORT INFORMATION
  Report Type: Spontaneous
  Country: ES (occurrence: ES)
  Receive Date: 20220113
  Receipt Date: 20220113
  Transmission Date: 20220424
  Serious: Yes (Hospitalization, Other)
  Sender: FDA-Public Use
  Company Number: ES-Accord-248374

PATIENT
  Age: 63 Year
  Sex: Female

DRUGS (1)
  1. FILGRASTIM [Suspect]
     Active Substance: FILGRASTIM
     Dosage: 30 MU, DAILY
     Route: 058

REACTIONS (2)
  - Immune reconstitution inflammatory syndrome [Unknown]
  - Acute respiratory distress syndrome [Unknown]
